FAERS Safety Report 6456834-5 (Version None)
Quarter: 2009Q4

REPORT INFORMATION
  Report Type: 
  Country: None (occurrence: None)
  Receive Date: 20091124
  Receipt Date: 20091124
  Transmission Date: 20100525
  Serious: Yes (Hospitalization)
  Sender: FDA-Public Use
  Company Number: None

PATIENT
  Sex: Male
  Weight: 36.7 kg

DRUGS (1)
  1. VIMPAT [Suspect]
     Dosage: 100 MG BID PO
     Route: 048
     Dates: start: 20091116, end: 20091121

REACTIONS (3)
  - ERYTHEMA MULTIFORME [None]
  - GAIT DISTURBANCE [None]
  - STEVENS-JOHNSON SYNDROME [None]
